FAERS Safety Report 15837576 (Version 4)
Quarter: 2019Q2

REPORT INFORMATION
  Report Type: Spontaneous
  Country: US (occurrence: US)
  Receive Date: 20190117
  Receipt Date: 20190604
  Transmission Date: 20190711
  Serious: No
  Sender: FDA-Public Use
  Company Number: US-VERTEX PHARMACEUTICALS-2019-000477

PATIENT
  Sex: Female

DRUGS (1)
  1. ORKAMBI [Suspect]
     Active Substance: IVACAFTOR\LUMACAFTOR
     Indication: CYSTIC FIBROSIS
     Dosage: 150/188 MG, ONE PACKET EVERY 12 HOURS WITH 5 ML SOFT FOOD.
     Route: 048
     Dates: start: 20181112

REACTIONS (8)
  - Productive cough [Unknown]
  - Vomiting [Not Recovered/Not Resolved]
  - Forced expiratory volume decreased [Recovered/Resolved]
  - Ear infection [Unknown]
  - Nasal congestion [Unknown]
  - Cough [Recovering/Resolving]
  - Flatulence [Not Recovered/Not Resolved]
  - Pneumonia [Not Recovered/Not Resolved]
